FAERS Safety Report 25520853 (Version 1)
Quarter: 2025Q3

REPORT INFORMATION
  Report Type: Spontaneous
  Country: US (occurrence: US)
  Receive Date: 20250705
  Receipt Date: 20250705
  Transmission Date: 20251021
  Serious: No
  Sender: SANOFI AVENTIS
  Company Number: US-SA-2025SA189286

PATIENT
  Age: 20 Year
  Sex: Female

DRUGS (10)
  1. DUPIXENT [Suspect]
     Active Substance: DUPILUMAB
     Indication: Dermatitis allergic
     Route: 058
     Dates: start: 20230531, end: 202504
  2. BENADRYL ALLERGY [Concomitant]
     Active Substance: DIPHENHYDRAMINE HYDROCHLORIDE
     Route: 048
  3. CEPHALEXIN [Concomitant]
     Active Substance: CEPHALEXIN
     Route: 048
  4. COENZYME Q10 [Concomitant]
     Active Substance: DIETARY SUPPLEMENT\UBIDECARENONE
     Route: 048
  5. MAGNESIUM MALATE [Concomitant]
     Active Substance: MAGNESIUM MALATE
     Route: 048
  6. VITAMINS [Concomitant]
     Active Substance: VITAMINS
  7. TACROLIMUS [Concomitant]
     Active Substance: TACROLIMUS
  8. Up4 Probiotic + Prebiotic [Concomitant]
     Route: 048
  9. IBUPROFEN [Concomitant]
     Active Substance: IBUPROFEN
  10. DIGESTIVE ADVANTAGE PROBIOTIC PLUS FIBER [Concomitant]
     Route: 048

REACTIONS (1)
  - Rebound eczema [Unknown]

NARRATIVE: CASE EVENT DATE: 20250702
